FAERS Safety Report 6981767-5 (Version None)
Quarter: 2010Q3

REPORT INFORMATION
  Report Type: 
  Country: None (occurrence: None)
  Receive Date: 20100914
  Receipt Date: 20091009
  Transmission Date: 20110219
  Serious: No
  Sender: FDA-Public Use
  Company Number: US-PFIZER INC-2009262504

PATIENT
  Sex: Female
  Weight: 109.75 kg

DRUGS (5)
  1. LYRICA [Suspect]
     Indication: PAIN
     Dosage: 50 MG, 3X/DAY
     Dates: start: 20080101
  2. BENICAR [Concomitant]
     Indication: HYPERTENSION
     Dosage: UNK
  3. FEMARA [Concomitant]
     Indication: BREAST CANCER
     Dosage: UNK
  4. ROPINIROLE [Concomitant]
     Indication: RESTLESS LEGS SYNDROME
     Dosage: UNK
  5. TRAMADOL [Concomitant]
     Indication: PAIN
     Dosage: UNK

REACTIONS (3)
  - DRUG INEFFECTIVE [None]
  - MEMORY IMPAIRMENT [None]
  - WEIGHT INCREASED [None]
